FAERS Safety Report 6854419-X (Version None)
Quarter: 2010Q3

REPORT INFORMATION
  Report Type: 
  Country: None (occurrence: None)
  Receive Date: 20100717
  Receipt Date: 20080103
  Transmission Date: 20110219
  Serious: No
  Sender: FDA-Public Use
  Company Number: US-PFIZER INC-2008002256

PATIENT
  Sex: Female
  Weight: 69.85 kg

DRUGS (7)
  1. CHANTIX [Suspect]
     Indication: SMOKING CESSATION THERAPY
     Dates: start: 20071116, end: 20071201
  2. OMEPRAZOLE [Concomitant]
  3. ATENOLOL [Concomitant]
  4. HYDROCHLOROTHIAZIDE [Concomitant]
  5. VYTORIN [Concomitant]
  6. LOPID [Concomitant]
  7. BENAZEPRIL HYDROCHLORIDE [Concomitant]

REACTIONS (3)
  - CONSTIPATION [None]
  - GASTROINTESTINAL DISORDER [None]
  - VOMITING [None]
